FAERS Safety Report 14388067 (Version 2)
Quarter: 2018Q2

REPORT INFORMATION
  Report Type: Spontaneous
  Country: US (occurrence: US)
  Receive Date: 20180115
  Receipt Date: 20180618
  Transmission Date: 20180711
  Serious: Yes (Other)
  Sender: FDA-Public Use
  Company Number: US-SA-2017SA208229

PATIENT
  Age: 44 Year
  Sex: Female
  Weight: 71.66 kg

DRUGS (11)
  1. TAXOTERE [Suspect]
     Active Substance: DOCETAXEL
     Dosage: 130 MG,Q3W
     Route: 051
     Dates: start: 20100430, end: 20100430
  2. ALOXI [Concomitant]
     Active Substance: PALONOSETRON HYDROCHLORIDE
  3. NEULASTA [Concomitant]
     Active Substance: PEGFILGRASTIM
  4. PARAPLATIN [Concomitant]
     Active Substance: CARBOPLATIN
  5. HERCEPTIN [Concomitant]
     Active Substance: TRASTUZUMAB
  6. DEXAMETHASONE. [Concomitant]
     Active Substance: DEXAMETHASONE
  7. MEFENAMIC ACID. [Concomitant]
     Active Substance: MEFENAMIC ACID
  8. TAXOTERE [Suspect]
     Active Substance: DOCETAXEL
     Indication: BREAST CANCER FEMALE
     Dosage: 125 MG,Q3W
     Route: 051
     Dates: start: 20100118, end: 20100118
  9. LORAZEPAM. [Concomitant]
     Active Substance: LORAZEPAM
  10. TOCOPHEROL [Concomitant]
     Active Substance: TOCOPHEROL
     Dosage: UNK UNK,UNK
     Route: 065
     Dates: start: 20050101, end: 20091221
  11. ADVIL 12HOUR [Concomitant]

REACTIONS (1)
  - Alopecia [Recovering/Resolving]

NARRATIVE: CASE EVENT DATE: 20101030
